FAERS Safety Report 8086210-3 (Version None)
Quarter: 2012Q1

REPORT INFORMATION
  Report Type: 
  Country: None (occurrence: None)
  Receive Date: 20120128
  Receipt Date: 20110418
  Transmission Date: 20120608
  Serious: No
  Sender: FDA-Public Use
  Company Number: US-ABBOTT-11P-163-0719662-00

PATIENT
  Sex: Female
  Weight: 68.1 kg

DRUGS (6)
  1. SYNTHROID [Concomitant]
     Indication: PRODUCT USED FOR UNKNOWN INDICATION
  2. ZOCOR [Concomitant]
     Indication: PRODUCT USED FOR UNKNOWN INDICATION
  3. LOPID [Concomitant]
     Indication: PRODUCT USED FOR UNKNOWN INDICATION
  4. VITAMIN B-12 [Concomitant]
     Indication: ANAEMIA
  5. ATACAND [Concomitant]
     Indication: PRODUCT USED FOR UNKNOWN INDICATION
  6. HUMIRA [Suspect]
     Indication: PSORIASIS
     Dates: start: 20100901, end: 20101001

REACTIONS (8)
  - GAIT DISTURBANCE [None]
  - BURNING SENSATION [None]
  - RED BLOOD CELL COUNT DECREASED [None]
  - ASTHMA [None]
  - ARTHRALGIA [None]
  - ANAEMIA [None]
  - WHITE BLOOD CELL COUNT DECREASED [None]
  - JOINT EFFUSION [None]
